FAERS Safety Report 6776790-X (Version None)
Quarter: 2010Q2

REPORT INFORMATION
  Report Type: 
  Country: None (occurrence: None)
  Receive Date: 20100617
  Receipt Date: 20100617
  Transmission Date: 20101027
  Serious: Yes (Disabling)
  Sender: FDA-Public Use
  Company Number: None

PATIENT
  Age: 80 Year
  Sex: Female
  Weight: 70 kg

DRUGS (19)
  1. CORDARONE [Suspect]
  2. CEFTRIAXONE [Concomitant]
  3. ROCEPHIN [Concomitant]
  4. TYLENOL [Concomitant]
  5. FLUZONE [Concomitant]
  6. PNEUMOVAX 23 [Concomitant]
  7. ZITHROMAX [Concomitant]
  8. XANAX [Concomitant]
  9. FRAGMIN [Concomitant]
  10. PROTONIX [Concomitant]
  11. SYNTHROID [Concomitant]
  12. DUONEB SOLN [Concomitant]
  13. NEURONTIN [Concomitant]
  14. REQUIP [Concomitant]
  15. BUSPAR [Concomitant]
  16. NAC DIAGNOSTIC REAGENT [Concomitant]
  17. ABILIFY [Concomitant]
  18. REMERON [Concomitant]
  19. KLONOPIN [Concomitant]

REACTIONS (3)
  - GENERAL PHYSICAL HEALTH DETERIORATION [None]
  - INTERSTITIAL LUNG DISEASE [None]
  - PULMONARY TOXICITY [None]
